FAERS Safety Report 7197533-4 (Version None)
Quarter: 2010Q4

REPORT INFORMATION
  Report Type: 
  Country: None (occurrence: None)
  Receive Date: 20101227
  Receipt Date: 20101217
  Transmission Date: 20110411
  Serious: Yes (Hospitalization, Other)
  Sender: FDA-Public Use
  Company Number: US-RANBAXY-2010US-40584

PATIENT
  Age: 39 Year
  Sex: Female

DRUGS (1)
  1. SIMVASTATIN [Suspect]
     Indication: PRODUCT USED FOR UNKNOWN INDICATION
     Dosage: UNK, UNK
     Route: 065

REACTIONS (5)
  - COMPARTMENT SYNDROME [None]
  - MEDICATION ERROR [None]
  - MUSCLE NECROSIS [None]
  - RENAL FAILURE [None]
  - WRONG DRUG ADMINISTERED [None]
